FAERS Safety Report 9590782 (Version 1)
Quarter: 2013Q4

REPORT INFORMATION
  Report Type: Spontaneous
  Country: US (occurrence: US)
  Receive Date: 20131003
  Receipt Date: 20131003
  Transmission Date: 20140711
  Serious: No
  Sender: FDA-Public Use
  Company Number: US-AMGEN-USASP2012075502

PATIENT
  Age: 48 Year
  Sex: Female

DRUGS (3)
  1. ENBREL [Suspect]
     Indication: RHEUMATOID ARTHRITIS
     Dosage: 50 MG, QWK
     Dates: start: 20110314, end: 20121117
  2. ARAVA [Concomitant]
     Dosage: UNK
     Dates: start: 201103
  3. ACTEMRA [Concomitant]
     Dosage: UNK
     Dates: start: 201211

REACTIONS (4)
  - Tendonitis [Not Recovered/Not Resolved]
  - Carpal tunnel syndrome [Not Recovered/Not Resolved]
  - Inflammation [Not Recovered/Not Resolved]
  - Finger deformity [Not Recovered/Not Resolved]
